FAERS Safety Report 7124491-0 (Version None)
Quarter: 2010Q4

REPORT INFORMATION
  Report Type: 
  Country: None (occurrence: None)
  Receive Date: 20101128
  Receipt Date: 20101125
  Transmission Date: 20110411
  Serious: Yes (Death)
  Sender: FDA-Public Use
  Company Number: BR-AMGEN-BRACT2010004110

PATIENT
  Sex: Female

DRUGS (4)
  1. DENOSUMAB [Suspect]
     Indication: OSTEOPOROSIS POSTMENOPAUSAL
     Dosage: 60 MG, Q6MO
     Route: 058
     Dates: start: 20050519, end: 20100526
  2. LEVOTHYROXINE SODIUM [Concomitant]
     Dosage: 75 A?G, QD
     Route: 048
     Dates: start: 20070801
  3. OMEPRAZOLE [Concomitant]
     Dosage: 20 MG, QD
     Route: 048
     Dates: start: 20010101
  4. CALCIUM W/VIT.D3 [Concomitant]

REACTIONS (1)
  - DEATH [None]
